FAERS Safety Report 5638232-7 (Version None)
Quarter: 2008Q1

REPORT INFORMATION
  Report Type: 
  Country: None (occurrence: None)
  Receive Date: 20080226
  Receipt Date: 20080220
  Transmission Date: 20080703
  Serious: No
  Sender: FDA-Public Use
  Company Number: US-BAXTER-2008BH001545

PATIENT
  Age: 55 Year
  Sex: Female
  Weight: 77 kg

DRUGS (9)
  1. HEPARIN SODIUM [Suspect]
     Indication: THROMBOSIS PROPHYLAXIS
     Route: 010
     Dates: start: 20071101, end: 20080201
  2. COREG [Concomitant]
     Indication: CARDIAC DISORDER
     Route: 048
     Dates: start: 20070101
  3. COZAAR [Concomitant]
     Indication: CARDIAC DISORDER
     Route: 048
     Dates: start: 20070101
  4. NEPHROCAPS [Concomitant]
     Indication: VITAMIN SUPPLEMENTATION
     Dosage: DOSE UNIT:UNKNOWN
     Route: 048
  5. TUMS [Concomitant]
     Indication: MINERAL SUPPLEMENTATION
     Route: 048
  6. BENADRYL [Concomitant]
     Indication: PROPHYLAXIS
     Route: 058
  7. NASONEX [Concomitant]
     Indication: COUGH
     Dosage: DOSE UNIT:UNKNOWN
     Route: 045
     Dates: start: 20080101
  8. ADVAIR DISKUS 100/50 [Concomitant]
     Indication: COUGH
     Route: 048
     Dates: start: 20080101
  9. ALBUTEROL [Concomitant]
     Indication: COUGH
     Dosage: DOSE UNIT:UNKNOWN
     Route: 065
     Dates: start: 20080101

REACTIONS (4)
  - ANXIETY [None]
  - DYSPNOEA [None]
  - TREMOR [None]
  - URTICARIA [None]
